FAERS Safety Report 16616004 (Version 1)
Quarter: 2019Q3

REPORT INFORMATION
  Report Type: Spontaneous
  Country: US (occurrence: US)
  Receive Date: 20190723
  Receipt Date: 20190723
  Transmission Date: 20191004
  Serious: No
  Sender: FDA-Public Use
  Company Number: None

PATIENT
  Age: 15 Year
  Sex: Female

DRUGS (1)
  1. NATURAL OPHTHALMICS WOMEN^S TEAR STIMULATION EYE DROPS [Suspect]
     Active Substance: HOMEOPATHICS
     Indication: ORTHOKERATOLOGY
     Route: 047
     Dates: start: 20161225, end: 20190112

REACTIONS (1)
  - Instillation site infection [None]

NARRATIVE: CASE EVENT DATE: 20180112
